FAERS Safety Report 23931978 (Version 1)
Quarter: 2024Q2

REPORT INFORMATION
  Report Type: Spontaneous
  Country: US (occurrence: US)
  Receive Date: 20240603
  Receipt Date: 20240603
  Transmission Date: 20240716
  Serious: No
  Sender: FDA-Public Use
  Company Number: US-AMGEN-USASP2024107904

PATIENT
  Age: 67 Year
  Sex: Female

DRUGS (1)
  1. MVASI [Suspect]
     Active Substance: BEVACIZUMAB-AWWB
     Indication: Ovarian cancer
     Dosage: DOSE ORDERED: 800 MG
     Route: 065
     Dates: start: 20231218

REACTIONS (1)
  - Blood pressure measurement [Unknown]

NARRATIVE: CASE EVENT DATE: 20240523
